FAERS Safety Report 5715269-0 (Version None)
Quarter: 2008Q2

REPORT INFORMATION
  Report Type: 
  Country: None (occurrence: None)
  Receive Date: 20080423
  Receipt Date: 20080411
  Transmission Date: 20081010
  Serious: Yes (Other)
  Sender: FDA-Public Use
  Company Number: US-PFIZER INC-2008016111

PATIENT
  Sex: Male
  Weight: 99.8 kg

DRUGS (3)
  1. CHANTIX [Suspect]
     Dates: start: 20080101, end: 20080201
  2. XANAX [Concomitant]
     Indication: GENERALISED ANXIETY DISORDER
  3. PAXIL CR [Concomitant]
     Indication: GENERALISED ANXIETY DISORDER

REACTIONS (5)
  - AGITATION [None]
  - HOMICIDAL IDEATION [None]
  - PSYCHOTIC BEHAVIOUR [None]
  - SUICIDAL IDEATION [None]
  - THINKING ABNORMAL [None]
